FAERS Safety Report 10274545 (Version 2)
Quarter: 2014Q3

REPORT INFORMATION
  Report Type: Spontaneous
  Country: AU (occurrence: AU)
  Receive Date: 20140702
  Receipt Date: 20140718
  Transmission Date: 20150326
  Serious: Yes (Hospitalization, Other)
  Sender: FDA-Public Use
  Company Number: AU-PFIZER INC-2014175113

PATIENT
  Sex: Female

DRUGS (2)
  1. SUTENT [Suspect]
     Active Substance: SUNITINIB MALATE
     Dosage: 25 MG, CYCLIC (FOUR WEEKS ON TWO WEEKS OFF)
     Dates: start: 20140121
  2. SUTENT [Suspect]
     Active Substance: SUNITINIB MALATE
     Indication: METASTATIC RENAL CELL CARCINOMA
     Dosage: 37.5 MG, CYCLIC (TWO WEEKS ON ONE WEEK OFF)
     Dates: start: 201312

REACTIONS (3)
  - Diverticular perforation [Unknown]
  - Drug intolerance [Unknown]
  - Diverticulitis [Unknown]

NARRATIVE: CASE EVENT DATE: 201405
